FAERS Safety Report 6752726-2 (Version None)
Quarter: 2010Q2

REPORT INFORMATION
  Report Type: 
  Country: None (occurrence: None)
  Receive Date: 20100528
  Receipt Date: 20100517
  Transmission Date: 20101027
  Serious: Yes (Hospitalization, Other)
  Sender: FDA-Public Use
  Company Number: AUR-APL-2010-01350

PATIENT
  Age: 50 Year
  Sex: Male
  Weight: 71.2147 kg

DRUGS (4)
  1. METFORMIN [Suspect]
     Dosage: 1000MG, BID
  2. METOPROLOL [Suspect]
     Dosage: 25MG, DAILY
  3. LIPITOR [Suspect]
     Dosage: 10MG, DAILY, ORAL
     Route: 048
     Dates: start: 20090901
  4. GLIPIZIDE [Suspect]
     Dosage: 10MG, BID

REACTIONS (3)
  - ARTERIAL OCCLUSIVE DISEASE [None]
  - CHEST PAIN [None]
  - SURGICAL PROCEDURE REPEATED [None]
